FAERS Safety Report 19115204 (Version 1)
Quarter: 2021Q2

REPORT INFORMATION
  Report Type: Spontaneous
  Country: US (occurrence: US)
  Receive Date: 20210408
  Receipt Date: 20210408
  Transmission Date: 20210717
  Serious: No
  Sender: FDA-Public Use
  Company Number: US-ORGANON-O2103USA001842

PATIENT
  Age: 64 Year
  Sex: Female

DRUGS (6)
  1. ASMANEX [Suspect]
     Active Substance: MOMETASONE FUROATE
     Indication: ASTHMA
     Dosage: 2 PUFFS TWICE A DAY
     Dates: start: 20210309, end: 202103
  2. ASMANEX [Suspect]
     Active Substance: MOMETASONE FUROATE
     Indication: BRONCHIECTASIS
  3. ESTROGEN [Concomitant]
     Active Substance: ESTROGENS
     Dosage: UNK
  4. ASMANEX [Suspect]
     Active Substance: MOMETASONE FUROATE
     Indication: ASTHMA
     Dosage: 2 PUFFS TWICE A DAY
     Dates: start: 2013
  5. ALBUTEROL SULFATE. [Concomitant]
     Active Substance: ALBUTEROL SULFATE
     Dosage: UNK
  6. ASMANEX [Suspect]
     Active Substance: MOMETASONE FUROATE
     Indication: BRONCHIECTASIS
     Dosage: 2 PUFFS TWICE A DAY
     Dates: start: 202103

REACTIONS (5)
  - Poor quality device used [Unknown]
  - Product use in unapproved indication [Unknown]
  - Cough [Not Recovered/Not Resolved]
  - Productive cough [Not Recovered/Not Resolved]
  - Device malfunction [Unknown]

NARRATIVE: CASE EVENT DATE: 2013
